FAERS Safety Report 21798629 (Version 1)
Quarter: 2022Q4

REPORT INFORMATION
  Report Type: Spontaneous
  Country: FR (occurrence: FR)
  Receive Date: 20221230
  Receipt Date: 20221230
  Transmission Date: 20230113
  Serious: No
  Sender: FDA-Public Use
  Company Number: FR-ALKEM LABORATORIES LIMITED-FR-ALKEM-2022-14183

PATIENT
  Age: 28 Month
  Sex: Male
  Weight: 3.33 kg

DRUGS (4)
  1. SIROLIMUS [Suspect]
     Active Substance: SIROLIMUS
     Indication: Hyperinsulinism
     Dosage: 0.5-1MG/SQ.M (INITIAL DOSE) SYRUP IN A CONCENTRATION OF 1 MG/ML
     Route: 065
  2. SIROLIMUS [Suspect]
     Active Substance: SIROLIMUS
     Dosage: 2.1 MILLIGRAM/SQ. METER, QD (MAXIMAL DOSE, TROUGH LEVEL 3.1-11.4 MICROGRAM PER LITRE (6.6))
     Route: 065
  3. OCTREOTIDE [Concomitant]
     Active Substance: OCTREOTIDE
     Indication: Hyperinsulinism
     Dosage: 18 MICROGRAM/KILOGRAM, QD
     Route: 065
  4. DEXTROSE [Concomitant]
     Active Substance: DEXTROSE
     Indication: Hyperinsulinism
     Dosage: 6 MILLIGRAM/KILOGRAM
     Route: 065

REACTIONS (2)
  - Stomatitis [Unknown]
  - Drug ineffective for unapproved indication [Unknown]
